FAERS Safety Report 8362093-9 (Version None)
Quarter: 2012Q2

REPORT INFORMATION
  Report Type: 
  Country: None (occurrence: None)
  Receive Date: 20120515
  Receipt Date: 20120509
  Transmission Date: 20120825
  Serious: Yes (Hospitalization)
  Sender: FDA-Public Use
  Company Number: CHPA2012JP009321

PATIENT
  Age: 92 Year
  Sex: Female

DRUGS (8)
  1. PURSENNID [Suspect]
     Route: 048
  2. TANATRIL ^ALGOL^ [Suspect]
  3. LEVOFLOXACIN [Suspect]
  4. JANUVIA [Suspect]
  5. RABEPRAZOLE SODIUM [Suspect]
  6. MAGNESIUM SULFATE [Suspect]
  7. ASPIRIN [Suspect]
  8. MUCOSOLVAN [Suspect]

REACTIONS (2)
  - TONGUE DISCOLOURATION [None]
  - PNEUMONIA [None]
